FAERS Safety Report 18181514 (Version 1)
Quarter: 2020Q3

REPORT INFORMATION
  Report Type: Spontaneous
  Country: JP (occurrence: JP)
  Receive Date: 20200821
  Receipt Date: 20200821
  Transmission Date: 20201103
  Serious: Yes (Life-Threatening, Hospitalization, Other)
  Sender: FDA-Public Use
  Company Number: JP-ALS-000085

PATIENT
  Age: 18 Year
  Sex: Female

DRUGS (5)
  1. GLIMEPIRIDE. [Suspect]
     Active Substance: GLIMEPIRIDE
     Indication: PRODUCT USED FOR UNKNOWN INDICATION
     Dosage: 7 TABLETS OF GLIMEPIRIDE?1 MG
     Route: 065
  2. METFORMIN [Suspect]
     Active Substance: METFORMIN HYDROCHLORIDE
     Indication: PRODUCT USED FOR UNKNOWN INDICATION
     Dosage: 64 TABLETS OF METFORMIN 250 MG?(16,000 MG IN TOTAL)
     Route: 065
  3. VILDAGLIPTIN [Suspect]
     Active Substance: VILDAGLIPTIN
     Indication: PRODUCT USED FOR UNKNOWN INDICATION
     Dosage: 26 TABLETS OF VILDAGLIPTIN 50 MG (1,300MG IN TOTAL
     Route: 065
  4. DAPAGLIFLOZIN. [Suspect]
     Active Substance: DAPAGLIFLOZIN
     Indication: PRODUCT USED FOR UNKNOWN INDICATION
     Dosage: 5 TABLETS OF DAPAGLIFLOZIN?5MG
     Route: 065
  5. ATORVASTATIN [Suspect]
     Active Substance: ATORVASTATIN
     Indication: PRODUCT USED FOR UNKNOWN INDICATION
     Dosage: 1 TABLET OF ATORVASTATIN?10MG
     Route: 065

REACTIONS (14)
  - Muscle contracture [Not Recovered/Not Resolved]
  - Intentional overdose [Unknown]
  - Hypoglycaemia [Unknown]
  - Hypotension [Recovered/Resolved]
  - Pneumonia aspiration [Unknown]
  - Bradypnoea [Unknown]
  - Acute kidney injury [Unknown]
  - Paralysis [Not Recovered/Not Resolved]
  - Capillary leak syndrome [Unknown]
  - Compartment syndrome [Recovered/Resolved]
  - Unresponsive to stimuli [Unknown]
  - Lactic acidosis [Unknown]
  - Loss of consciousness [Unknown]
  - Suicide attempt [Unknown]
